FAERS Safety Report 25943684 (Version 1)
Quarter: 2025Q4

REPORT INFORMATION
  Report Type: Spontaneous
  Country: GB (occurrence: None)
  Receive Date: 20251021
  Receipt Date: 20251021
  Transmission Date: 20260117
  Serious: Yes (Disabling, Other)
  Sender: FDA-CTU
  Company Number: None

PATIENT
  Age: 43 Year
  Sex: Female

DRUGS (2)
  1. CITALOPRAM [Suspect]
     Active Substance: CITALOPRAM
     Indication: Perinatal depression
  2. PROPRANOLOL [Concomitant]
     Active Substance: PROPRANOLOL HYDROCHLORIDE

REACTIONS (16)
  - Drug withdrawal syndrome [None]
  - Insomnia [None]
  - Panic attack [None]
  - Decreased appetite [None]
  - Suicidal ideation [None]
  - Anxiety [None]
  - Chest pain [None]
  - Palpitations [None]
  - Restlessness [None]
  - Depression [None]
  - Tremor [None]
  - Myalgia [None]
  - Muscle spasms [None]
  - Electrocardiogram QT prolonged [None]
  - Extrasystoles [None]
  - Quality of life decreased [None]

NARRATIVE: CASE EVENT DATE: 20231118
